FAERS Safety Report 9769844 (Version 1)
Quarter: 2013Q4

REPORT INFORMATION
  Report Type: Spontaneous
  Country: US (occurrence: US)
  Receive Date: 20131218
  Receipt Date: 20131218
  Transmission Date: 20140711
  Serious: No
  Sender: FDA-Public Use
  Company Number: US-BAYER-2013-154913

PATIENT
  Sex: 0

DRUGS (3)
  1. ALEVE CAPLET [Suspect]
     Dosage: UNK
     Route: 048
  2. MOTRIN [Concomitant]
     Dosage: UNK
  3. FLEXERIL [Concomitant]
     Dosage: UNK

REACTIONS (1)
  - Drug ineffective [None]
